FAERS Safety Report 20982843 (Version 2)
Quarter: 2022Q2

REPORT INFORMATION
  Report Type: Report from Study
  Country: JP (occurrence: JP)
  Receive Date: 20220620
  Receipt Date: 20220623
  Transmission Date: 20220721
  Serious: Yes (Hospitalization, Other)
  Sender: FDA-Public Use
  Company Number: JP-BAXTER-2022BAX012626

PATIENT
  Age: 72 Year
  Sex: Female

DRUGS (20)
  1. CYCLOPHOSPHAMIDE [Suspect]
     Active Substance: CYCLOPHOSPHAMIDE
     Indication: Microscopic polyangiitis
     Dosage: 560 MG, QD
     Route: 041
     Dates: start: 20220507, end: 20220507
  2. CYCLOPHOSPHAMIDE [Suspect]
     Active Substance: CYCLOPHOSPHAMIDE
     Dosage: 520 UNK
     Route: 041
     Dates: start: 20220521, end: 20220521
  3. CYCLOPHOSPHAMIDE [Suspect]
     Active Substance: CYCLOPHOSPHAMIDE
     Dosage: 510 UNK
     Route: 041
     Dates: start: 20220604, end: 20220604
  4. PREDNISOLONE [Concomitant]
     Active Substance: PREDNISOLONE
     Indication: Microscopic polyangiitis
     Dosage: 46 MG, QD
     Route: 048
     Dates: start: 20220507
  5. PREDNISOLONE [Concomitant]
     Active Substance: PREDNISOLONE
     Dosage: 35 MG, QD
     Route: 048
     Dates: start: 20220605
  6. METHYLCOBALAMIN [Concomitant]
     Active Substance: METHYLCOBALAMIN
     Indication: Myalgia
     Dosage: 1500 UG, QD
     Route: 048
     Dates: start: 20220404
  7. NEUROTROPIN [Concomitant]
     Active Substance: NEUROTROPIN
     Indication: Myalgia
     Dosage: 16 IU, QD
     Route: 048
     Dates: start: 20220404
  8. XARELTO [Concomitant]
     Active Substance: RIVAROXABAN
     Indication: Deep vein thrombosis
     Dosage: 15 MG, QD
     Route: 048
     Dates: start: 20220430
  9. XARELTO [Concomitant]
     Active Substance: RIVAROXABAN
     Indication: Pulmonary artery thrombosis
  10. DEXAMETHASONE [Concomitant]
     Active Substance: DEXAMETHASONE
     Indication: Scleritis
     Dosage: 1 [DRP], QD
     Route: 065
     Dates: start: 20220423
  11. DIQUAFOSOL TETRASODIUM [Concomitant]
     Active Substance: DIQUAFOSOL TETRASODIUM
     Indication: Scleritis
     Dosage: 1 [DRP], QD
     Route: 065
     Dates: start: 202202
  12. HYALURONATE SODIUM [Concomitant]
     Active Substance: HYALURONATE SODIUM
     Indication: Scleritis
     Dosage: 1 [DRP], QD
     Route: 065
     Dates: start: 202202
  13. BONALON [Concomitant]
     Active Substance: ALENDRONATE SODIUM
     Indication: Osteoporosis prophylaxis
     Dosage: 1 {DF}, QD
     Route: 048
     Dates: start: 20220516
  14. NEXIUM [Concomitant]
     Active Substance: ESOMEPRAZOLE MAGNESIUM
     Indication: Gastrooesophageal reflux disease
     Dosage: 20 MG, QD
     Route: 048
     Dates: start: 20220507
  15. NEXIUM [Concomitant]
     Active Substance: ESOMEPRAZOLE MAGNESIUM
     Indication: Gastritis erosive
  16. SULFAMETHOXAZOLE\TRIMETHOPRIM [Concomitant]
     Active Substance: SULFAMETHOXAZOLE\TRIMETHOPRIM
     Indication: Pneumocystis jirovecii pneumonia
     Dosage: 1 {DF}, QD
     Route: 048
     Dates: start: 20220521
  17. ELOBIXIBAT [Concomitant]
     Active Substance: ELOBIXIBAT
     Indication: Constipation
     Dosage: 10 MG, QD
     Route: 048
     Dates: start: 20220526
  18. CRESTOR [Concomitant]
     Active Substance: ROSUVASTATIN CALCIUM
     Indication: Lipid metabolism disorder
     Dosage: 2.5 MG, QD
     Route: 048
     Dates: start: 20220603
  19. SODIUM PICOSULFATE [Concomitant]
     Active Substance: SODIUM PICOSULFATE
     Indication: Constipation
     Dosage: 20 DROP PER DAY
     Route: 048
     Dates: start: 20220607
  20. HUMALOG [Concomitant]
     Active Substance: INSULIN LISPRO
     Indication: Type 2 diabetes mellitus
     Dosage: 22 IU, QD
     Route: 058
     Dates: start: 20220605

REACTIONS (1)
  - Myocardial ischaemia [Not Recovered/Not Resolved]

NARRATIVE: CASE EVENT DATE: 20220602
